FAERS Safety Report 15868477 (Version 1)
Quarter: 2019Q1

REPORT INFORMATION
  Report Type: Spontaneous
  Country: US (occurrence: US)
  Receive Date: 20190125
  Receipt Date: 20190125
  Transmission Date: 20190417
  Serious: Yes (Death)
  Sender: FDA-Public Use
  Company Number: US-ANIPHARMA-2019-US-001426

PATIENT
  Age: 94 Year
  Sex: Female

DRUGS (2)
  1. UNSPECIFIED ^BLOOD THINNER^ [Concomitant]
     Active Substance: UNSPECIFIED INGREDIENT
  2. ARIMIDEX [Suspect]
     Active Substance: ANASTROZOLE
     Indication: BREAST CANCER
     Dosage: 1 TAB DAILY
     Route: 048
     Dates: start: 2011, end: 20181028

REACTIONS (3)
  - Death [Fatal]
  - Disease progression [Fatal]
  - Drug ineffective [Not Recovered/Not Resolved]
